FAERS Safety Report 7469532-6 (Version None)
Quarter: 2011Q2

REPORT INFORMATION
  Report Type: 
  Country: None (occurrence: None)
  Receive Date: 20110510
  Receipt Date: 20110427
  Transmission Date: 20111010
  Serious: Yes (Other)
  Sender: FDA-Public Use
  Company Number: PHEH2007US07409

PATIENT
  Sex: Female
  Weight: 82.54 kg

DRUGS (46)
  1. FASLODEX [Concomitant]
  2. VICODIN [Concomitant]
  3. PIPROZOLIN [Concomitant]
  4. NOVOLIN R [Concomitant]
  5. HORMONES NOS [Suspect]
     Indication: MENOPAUSE
     Dates: start: 19870101, end: 19900101
  6. FOLIC ACID [Concomitant]
  7. XOPENEX [Concomitant]
  8. PHOSPHOLIPIDS [Concomitant]
  9. ESTRADERM [Suspect]
     Indication: MENOPAUSE
     Dosage: 0.1 MG, UNK
     Route: 062
     Dates: start: 19950501, end: 19960301
  10. PREMARIN [Suspect]
     Indication: VAGINAL HAEMORRHAGE
     Dosage: 1.25 MG, QD
     Route: 048
     Dates: start: 19810101, end: 19820101
  11. BUDESONIDE [Concomitant]
  12. ATROVENT [Concomitant]
  13. ACETAMINOPHEN [Concomitant]
  14. GLYNASE [Concomitant]
     Indication: DIABETES MELLITUS
     Dosage: 3 MG, QD
     Route: 048
     Dates: start: 19931112
  15. CARDIZEM [Concomitant]
  16. ANCEF [Concomitant]
  17. HUMIRA [Concomitant]
  18. BIAXIN [Concomitant]
  19. CYCRIN [Suspect]
     Indication: MENOPAUSE
     Dosage: 10 MG, QD
     Route: 048
     Dates: start: 19950501, end: 19961001
  20. NORVASC [Concomitant]
     Indication: HYPERTENSION
     Dosage: 5 MG, QD
     Route: 048
     Dates: start: 19930101
  21. ASPIRIN [Concomitant]
  22. COMPAZINE [Concomitant]
  23. GLYBURIDE [Concomitant]
  24. REGLAN [Concomitant]
  25. HYDROCODONE BITARTRATE [Concomitant]
  26. DYAZIDE [Concomitant]
     Indication: HYPERTENSION
     Dosage: 37.5 MG, UNK
     Dates: start: 19900712
  27. ABRAXANE [Concomitant]
  28. AVASTIN [Concomitant]
  29. MEGACE [Concomitant]
  30. ARANESP [Concomitant]
  31. PACLITAXEL [Concomitant]
  32. FEMARA [Concomitant]
  33. FOSAMAX [Concomitant]
  34. LOPRESSOR [Concomitant]
  35. ALBUTEROL [Concomitant]
  36. PULMICORT [Concomitant]
  37. SODIUM NITROPRUSSIDE [Concomitant]
  38. HUMULIN R [Concomitant]
  39. CHLORASEPTIC [Concomitant]
  40. LIPITOR [Concomitant]
  41. PREMPRO [Suspect]
     Indication: MENOPAUSE
     Dosage: .625/25 MG PO QD
     Route: 048
     Dates: start: 19930101, end: 20020308
  42. DIABETA [Concomitant]
     Indication: DIABETES MELLITUS
     Dosage: 5 MG, QD
     Dates: start: 20031112
  43. ACTOS [Concomitant]
  44. MULTI-VITAMINS [Concomitant]
  45. LISINOPRIL [Concomitant]
  46. CASODEX [Concomitant]

REACTIONS (23)
  - METASTASES TO LUNG [None]
  - OSTEOARTHRITIS [None]
  - TACHYCARDIA [None]
  - BREAST CANCER METASTATIC [None]
  - BREAST MASS [None]
  - SWELLING [None]
  - RENAL CYST [None]
  - NEUTROPENIA [None]
  - SCOLIOSIS [None]
  - CYSTITIS [None]
  - OSTEOPOROSIS [None]
  - HYDROPNEUMOTHORAX [None]
  - ATELECTASIS [None]
  - ANAEMIA [None]
  - DIZZINESS [None]
  - PLEURAL EFFUSION [None]
  - BREAST CANCER [None]
  - PAIN [None]
  - CHRONIC OBSTRUCTIVE PULMONARY DISEASE [None]
  - ELECTROCARDIOGRAM T WAVE ABNORMAL [None]
  - CHEST PAIN [None]
  - NEUROPATHY PERIPHERAL [None]
  - SINUS TACHYCARDIA [None]
